FAERS Safety Report 8870385 (Version 1)
Quarter: 2012Q4

REPORT INFORMATION
  Report Type: 
  Country: US (occurrence: US)
  Receive Date: 20121023
  Receipt Date: 20121023
  Transmission Date: 20130627
  Serious: No
  Sender: FDA-Public Use
  Company Number: US-AMGEN-USASP2011066318

PATIENT
  Sex: Female

DRUGS (1)
  1. ENBREL [Suspect]
     Indication: PSORIATIC ARTHROPATHY
     Dosage: 50 mg, qwk
     Dates: start: 201109

REACTIONS (4)
  - Erythema [Not Recovered/Not Resolved]
  - Macule [Not Recovered/Not Resolved]
  - Localised infection [Not Recovered/Not Resolved]
  - Cellulitis [Not Recovered/Not Resolved]
